FAERS Safety Report 10606555 (Version 1)
Quarter: 2014Q4

REPORT INFORMATION
  Report Type: Spontaneous
  Country: US (occurrence: None)
  Receive Date: 20141124
  Receipt Date: 20141124
  Transmission Date: 20150529
  Serious: Yes (Life-Threatening, Hospitalization)
  Sender: FDA-Public Use
  Company Number: None

PATIENT
  Age: 27 Year
  Sex: Female
  Weight: 94.8 kg

DRUGS (2)
  1. VIIBRYD [Suspect]
     Active Substance: VILAZODONE HYDROCHLORIDE
     Indication: MANIA
     Dosage: 40 MG/ 1 PIL?2HRS AFTER VYVANSE ?TAKEN BY MOUTH
     Route: 048
     Dates: start: 20120301, end: 20141121
  2. VIIBRYD [Suspect]
     Active Substance: VILAZODONE HYDROCHLORIDE
     Indication: DEPRESSION
     Dosage: 40 MG/ 1 PIL?2HRS AFTER VYVANSE ?TAKEN BY MOUTH
     Route: 048
     Dates: start: 20120301, end: 20141121

REACTIONS (3)
  - Withdrawal syndrome [None]
  - Drug abuser [None]
  - Generalised tonic-clonic seizure [None]

NARRATIVE: CASE EVENT DATE: 20141121
